FAERS Safety Report 8146512 (Version 4)
Quarter: 2013Q3

REPORT INFORMATION
  Report Type: Report from Study
  Country: AR (occurrence: AR)
  Receive Date: 20110921
  Receipt Date: 20130717
  Transmission Date: 20140515
  Serious: Yes (Hospitalization, Other)
  Sender: FDA-Public Use
  Company Number: AR-ROCHE-GNE324387

PATIENT
  Sex: Male

DRUGS (1)
  1. RANIBIZUMAB [Suspect]
     Indication: MACULOPATHY
     Route: 050
     Dates: start: 200912

REACTIONS (4)
  - Cerebrovascular accident [Recovering/Resolving]
  - Visual acuity reduced [Not Recovered/Not Resolved]
  - Upper limb fracture [Recovered/Resolved]
  - Drug ineffective [Unknown]
